FAERS Safety Report 7091396-3 (Version None)
Quarter: 2010Q4

REPORT INFORMATION
  Report Type: 
  Country: None (occurrence: None)
  Receive Date: 20101109
  Receipt Date: 20101103
  Transmission Date: 20110411
  Serious: Yes (Other)
  Sender: FDA-Public Use
  Company Number: A0891273A

PATIENT
  Sex: Male

DRUGS (3)
  1. LAMICTAL [Suspect]
  2. ZANTAC [Suspect]
  3. ANTI-ANXIETY MED- NAME UNKNOWN [Suspect]
     Indication: ANXIETY

REACTIONS (4)
  - BLEPHAROSPASM [None]
  - CONVULSION [None]
  - FATIGUE [None]
  - VOMITING [None]
